FAERS Safety Report 5003367-9 (Version None)
Quarter: 2006Q2

REPORT INFORMATION
  Report Type: 
  Country: None (occurrence: None)
  Receive Date: 20060511
  Receipt Date: 20060505
  Transmission Date: 20061013
  Serious: Yes (Hospitalization, Other)
  Sender: FDA-Public Use
  Company Number: HQWYE229609MAY06

PATIENT
  Age: 3 Year
  Sex: Male

DRUGS (3)
  1. ADVIL [Suspect]
     Indication: PYREXIA
     Route: 048
     Dates: start: 20060412, end: 20060414
  2. ACETAMINOPHEN [Concomitant]
  3. MAXILASE (AMYLASE) [Concomitant]

REACTIONS (2)
  - EYE OEDEMA [None]
  - SINUSITIS [None]
